FAERS Safety Report 5912615-X (Version None)
Quarter: 2008Q4

REPORT INFORMATION
  Report Type: 
  Country: None (occurrence: None)
  Receive Date: 20081008
  Receipt Date: 20080925
  Transmission Date: 20090506
  Serious: Yes (Death)
  Sender: FDA-Public Use
  Company Number: GB-ELI_LILLY_AND_COMPANY-GB200809002743

PATIENT
  Age: 39 Year
  Sex: Female

DRUGS (3)
  1. PROZAC [Suspect]
     Dosage: UNK, UNK
     Dates: start: 20070501, end: 20070601
  2. PROZAC [Interacting]
     Dosage: 40 MG, DAILY (1/D)
     Dates: start: 20070601
  3. SOLIAN [Interacting]
     Dosage: 1200 MG, UNK

REACTIONS (2)
  - DEATH [None]
  - DRUG INTERACTION [None]
